FAERS Safety Report 22052332 (Version 1)
Quarter: 2023Q1

REPORT INFORMATION
  Report Type: Report from Study
  Country: US (occurrence: US)
  Receive Date: 20230302
  Receipt Date: 20230302
  Transmission Date: 20230417
  Serious: Yes (Other)
  Sender: FDA-Public Use
  Company Number: US-JNJFOC-20190717270

PATIENT
  Age: 43 Year
  Sex: Female

DRUGS (1)
  1. GUSELKUMAB [Suspect]
     Active Substance: GUSELKUMAB
     Indication: Psoriasis
     Dosage: 100MG WEEK 0, 100MG WEEK 4 DOSE (HELD UNTIL 6/2019).
     Route: 058
     Dates: start: 201906

REACTIONS (1)
  - Cellulitis [Recovered/Resolved]
